FAERS Safety Report 4706731-8 (Version None)
Quarter: 2005Q2

REPORT INFORMATION
  Report Type: 
  Country: None (occurrence: None)
  Receive Date: 20050629
  Receipt Date: 20050304
  Transmission Date: 20051028
  Serious: No
  Sender: FDA-Public Use
  Company Number: 04P-163-0272050-00

PATIENT
  Age: 59 Year
  Sex: Female
  Weight: 97.5234 kg

DRUGS (7)
  1. HUMIRA [Suspect]
     Indication: RHEUMATOID ARTHRITIS
     Dosage: 40 MG, 1 IN 2 WK, SUBCUTANEOUS
     Route: 058
     Dates: start: 20040601, end: 20041201
  2. METOPROLOL TARTRATE [Concomitant]
  3. PANTOPRAZOLE [Concomitant]
  4. BUPROPION HYDROCHLORIDE [Concomitant]
  5. PREDNISONE TAB [Concomitant]
  6. ASPIRIN [Concomitant]
  7. VOLTAREN [Concomitant]

REACTIONS (3)
  - INFLUENZA [None]
  - INJECTION SITE ERYTHEMA [None]
  - INJECTION SITE HAEMORRHAGE [None]
